FAERS Safety Report 23566318 (Version 1)
Quarter: 2024Q1

REPORT INFORMATION
  Report Type: Spontaneous
  Country: US (occurrence: US)
  Receive Date: 20240226
  Receipt Date: 20240226
  Transmission Date: 20240409
  Serious: No
  Sender: FDA-Public Use
  Company Number: US-BRISTOL-MYERS SQUIBB COMPANY-2024-030513

PATIENT
  Age: 82 Year
  Sex: Male
  Weight: 112.04 kg

DRUGS (1)
  1. REVLIMID [Suspect]
     Active Substance: LENALIDOMIDE
     Indication: Plasma cell myeloma
     Dosage: 14D OF 21D
     Route: 048

REACTIONS (5)
  - Dizziness [Unknown]
  - Constipation [Unknown]
  - Oropharyngeal pain [Unknown]
  - Dysphonia [Unknown]
  - Off label use [Unknown]
